FAERS Safety Report 10089286 (Version 3)
Quarter: 2014Q2

REPORT INFORMATION
  Report Type: Spontaneous
  Country: JP (occurrence: None)
  Receive Date: 20140417
  Receipt Date: 20140422
  Transmission Date: 20141212
  Serious: Yes (Death, Hospitalization, Other)
  Sender: FDA-Public Use
  Company Number: ADR-2014-00616

PATIENT
  Age: 69 Year
  Sex: Male

DRUGS (1)
  1. GABALON INTRATHECAL [Suspect]
     Indication: CEREBELLAR INFARCTION
     Dosage: 400MCG/DAY
     Dates: start: 20130207

REACTIONS (9)
  - Vomiting [None]
  - Dizziness [None]
  - Urosepsis [None]
  - Blood pressure decreased [None]
  - General physical health deterioration [None]
  - Malnutrition [None]
  - Urinary tract infection [None]
  - Drug effect decreased [None]
  - Altered state of consciousness [None]
